FAERS Safety Report 20656542 (Version 2)
Quarter: 2022Q4

REPORT INFORMATION
  Report Type: Other
  Country: DE (occurrence: None)
  Receive Date: 20220331
  Receipt Date: 20221027
  Transmission Date: 20230112
  Serious: No
  Sender: FDA-Public Use
  Company Number: DE-ROCHE-3062168

PATIENT
  Age: 32 Year
  Sex: Female

DRUGS (9)
  1. OCREVUS [Suspect]
     Active Substance: OCRELIZUMAB
     Indication: Relapsing-remitting multiple sclerosis
     Route: 042
     Dates: start: 20220110
  2. TIZANIDINE [Concomitant]
     Active Substance: TIZANIDINE
     Route: 048
  3. MIRABEGRON [Concomitant]
     Active Substance: MIRABEGRON
  4. NABIXIMOLS [Concomitant]
     Active Substance: NABIXIMOLS
  5. BUPROPION [Concomitant]
     Active Substance: BUPROPION
  6. PANTOPRAZOLE [Concomitant]
     Active Substance: PANTOPRAZOLE
  7. DESOFEMONO [Concomitant]
  8. IBUPROFEN [Concomitant]
     Active Substance: IBUPROFEN
     Dosage: AS NEEDED
  9. NOVALGIN (METAMIZOLE SODIUM) [Concomitant]
     Active Substance: METAMIZOLE SODIUM
     Dosage: AS NEEDED

REACTIONS (11)
  - Fatigue [Recovered/Resolved]
  - Fatigue [Recovered/Resolved]
  - Headache [Recovered/Resolved]
  - Pain in extremity [Recovered/Resolved]
  - COVID-19 [Recovered/Resolved]
  - Muscle spasms [Not Recovered/Not Resolved]
  - Muscle tightness [Not Recovered/Not Resolved]
  - Nasopharyngitis [Not Recovered/Not Resolved]
  - Throat irritation [Not Recovered/Not Resolved]
  - Upper respiratory tract congestion [Not Recovered/Not Resolved]
  - Headache [Not Recovered/Not Resolved]

NARRATIVE: CASE EVENT DATE: 20220210
